FAERS Safety Report 9716810 (Version 3)
Quarter: 2014Q4

REPORT INFORMATION
  Report Type: Spontaneous
  Country: JP (occurrence: None)
  Receive Date: 20131125
  Receipt Date: 20141229
  Transmission Date: 20150529
  Serious: Yes (Other)
  Sender: FDA-Public Use
  Company Number: JP-RRD-13-00040

PATIENT
  Age: 8 Year
  Sex: Male

DRUGS (5)
  1. CYCLOPHOSPHAMIDE (CYCLOPHOSPHAMIDE) [Suspect]
     Active Substance: CYCLOPHOSPHAMIDE
     Indication: EMBRYONAL RHABDOMYOSARCOMA
  2. VINCRISTINE (VINCRISTINE) [Concomitant]
  3. COSMEGEN [Suspect]
     Active Substance: DACTINOMYCIN
     Indication: EMBRYONAL RHABDOMYOSARCOMA
  4. IFOSFAMIDE (IFOSFAMIDE) [Concomitant]
     Active Substance: IFOSFAMIDE
  5. PIRARUBICIN (PIRARUBICIN) [Concomitant]

REACTIONS (6)
  - Urinary bladder atrophy [None]
  - Cystitis haemorrhagic [None]
  - Pulmonary mass [None]
  - Metastatic lymphoma [None]
  - Recurrent cancer [None]
  - Bladder fibrosis [None]
